FAERS Safety Report 4680102-5 (Version None)
Quarter: 2005Q2

REPORT INFORMATION
  Report Type: 
  Country: None (occurrence: None)
  Receive Date: 20050602
  Receipt Date: 20050422
  Transmission Date: 20051028
  Serious: Yes (Death, Other)
  Sender: FDA-Public Use
  Company Number: BR-BRISTOL-MYERS SQUIBB COMPANY-12982237

PATIENT
  Age: 66 Year
  Sex: Female

DRUGS (1)
  1. CEFEPIME HCL [Suspect]
     Indication: URINARY TRACT INFECTION
     Dosage: 4 GRAMS ON DAY 1, 6 GRAMS ON DAY 2 AND DAY 3, AND 2 GRAMS ONCE EVERY 16 HOURS FOR 12 DAYS

REACTIONS (6)
  - AGITATION [None]
  - DEATH [None]
  - ELECTROENCEPHALOGRAM ABNORMAL [None]
  - RENAL FAILURE [None]
  - SEPSIS [None]
  - STUPOR [None]
